FAERS Safety Report 24085430 (Version 1)
Quarter: 2024Q3

REPORT INFORMATION
  Report Type: Spontaneous
  Country: HU (occurrence: None)
  Receive Date: 20240712
  Receipt Date: 20240712
  Transmission Date: 20241016
  Serious: Yes (Other)
  Sender: ASTRAZENECA
  Company Number: 2024A157229

PATIENT
  Age: 26 Year
  Sex: Male

DRUGS (6)
  1. OSIMERTINIB [Suspect]
     Active Substance: OSIMERTINIB
     Indication: Lung adenocarcinoma
     Route: 048
  2. OSIMERTINIB [Suspect]
     Active Substance: OSIMERTINIB
     Indication: EGFR gene mutation
     Route: 048
  3. PACLITAXEL [Concomitant]
     Active Substance: PACLITAXEL
  4. CARBOPLATIN [Concomitant]
     Active Substance: CARBOPLATIN
  5. ATEZOLIZUMAB [Concomitant]
     Active Substance: ATEZOLIZUMAB
  6. BEVACIZUMAB [Concomitant]
     Active Substance: BEVACIZUMAB

REACTIONS (5)
  - Malignant neoplasm progression [Unknown]
  - Metastases to central nervous system [Unknown]
  - Small cell lung cancer [Unknown]
  - Drug resistance [Unknown]
  - EGFR gene mutation [Unknown]
